FAERS Safety Report 10535314 (Version 2)
Quarter: 2014Q4

REPORT INFORMATION
  Report Type: Report from Study
  Country: US (occurrence: US)
  Receive Date: 20141022
  Receipt Date: 20141125
  Transmission Date: 20150529
  Serious: Yes (Hospitalization, Other)
  Sender: FDA-Public Use
  Company Number: US-GLAXOSMITHKLINE-US2014007677

PATIENT
  Age: 46 Year
  Sex: Female
  Weight: 120.4 kg

DRUGS (10)
  1. PROCHLORPERAZINE MALEATE. [Concomitant]
     Active Substance: PROCHLORPERAZINE MALEATE
     Indication: NAUSEA
     Route: 048
     Dates: start: 20141013, end: 20141013
  2. MAGNESIUM SULFATE. [Concomitant]
     Active Substance: MAGNESIUM SULFATE
     Indication: BLOOD MAGNESIUM DECREASED
     Route: 042
     Dates: start: 20141017, end: 20141017
  3. KCL IMMEDIATE RELEASE [Concomitant]
     Indication: HYPOKALAEMIA
     Route: 048
     Dates: start: 20141017, end: 20141017
  4. MIRALAX [Concomitant]
     Active Substance: POLYETHYLENE GLYCOL 3350
     Indication: CONSTIPATION
     Dosage: 17 G, 1D
     Route: 048
     Dates: start: 20141013
  5. SENNA [Concomitant]
     Active Substance: SENNA LEAF\SENNOSIDES\SENNOSIDES A AND B
     Indication: CONSTIPATION
     Dosage: 2 UNK, UNK
     Route: 048
     Dates: start: 20141013
  6. ACETAMINOPHEN. [Concomitant]
     Active Substance: ACETAMINOPHEN
     Indication: PAIN
     Route: 048
     Dates: start: 20141013, end: 20141015
  7. TRAMETINIB [Suspect]
     Active Substance: TRAMETINIB
     Indication: COLORECTAL ADENOCARCINOMA
     Dosage: 2 MG, 1D
     Route: 048
     Dates: start: 20140912
  8. PALBOCICLIB [Suspect]
     Active Substance: PALBOCICLIB
     Indication: COLORECTAL ADENOCARCINOMA
     Dosage: 75 MG, CYC
     Route: 048
     Dates: start: 20140912
  9. IMODIUM [Concomitant]
     Active Substance: LOPERAMIDE HYDROCHLORIDE
     Indication: DIARRHOEA
     Dosage: 2 MG, PRN
     Route: 048
     Dates: start: 20141013
  10. COLACE [Concomitant]
     Active Substance: DOCUSATE SODIUM
     Indication: CONSTIPATION
     Dosage: 100 MG, UNK
     Route: 048
     Dates: start: 20141013

REACTIONS (1)
  - Thrombosis in device [Recovered/Resolved]

NARRATIVE: CASE EVENT DATE: 20141012
